FAERS Safety Report 4969201-8 (Version None)
Quarter: 2006Q2

REPORT INFORMATION
  Report Type: 
  Country: None (occurrence: None)
  Receive Date: 20060411
  Receipt Date: 20060302
  Transmission Date: 20061013
  Serious: Yes (Hospitalization)
  Sender: FDA-Public Use
  Company Number: US-MERCK-0603USA00694

PATIENT
  Age: 60 Year
  Sex: Male
  Weight: 82 kg

DRUGS (8)
  1. VIOXX [Suspect]
     Indication: ARTHRITIS
     Route: 048
     Dates: start: 20010101, end: 20030101
  2. CELEBREX [Concomitant]
     Route: 065
  3. ZOCOR [Concomitant]
     Route: 065
  4. NITROGLYCERIN [Concomitant]
     Route: 065
  5. TOPROL-XL [Concomitant]
     Route: 065
  6. LODINE [Concomitant]
     Route: 065
  7. FLONASE [Concomitant]
     Route: 065
  8. ZANTAC [Concomitant]
     Route: 065

REACTIONS (10)
  - ATELECTASIS [None]
  - CEREBROVASCULAR ACCIDENT [None]
  - CORONARY ARTERY DISEASE [None]
  - CORONARY ARTERY STENOSIS [None]
  - DUODENITIS [None]
  - ELECTROENCEPHALOGRAM ABNORMAL [None]
  - METABOLIC ENCEPHALOPATHY [None]
  - MYOCARDIAL INFARCTION [None]
  - PLEURAL EFFUSION [None]
  - TRANSIENT ISCHAEMIC ATTACK [None]
